FAERS Safety Report 16379573 (Version 2)
Quarter: 2019Q3

REPORT INFORMATION
  Report Type: Report from Study
  Country: DE (occurrence: DE)
  Receive Date: 20190531
  Receipt Date: 20190805
  Transmission Date: 20191004
  Serious: Yes (Hospitalization)
  Sender: FDA-Public Use
  Company Number: DE-MYLANLABS-2019M1050808

PATIENT
  Age: 49 Year
  Sex: Female
  Weight: 72 kg

DRUGS (9)
  1. PERTUZUMAB. [Suspect]
     Active Substance: PERTUZUMAB
     Dosage: 840 MILLIGRAM, Q21D
     Route: 042
  2. TAVEGIL                            /00137201/ [Concomitant]
     Active Substance: CLEMASTINE FUMARATE
     Indication: HYPERSENSITIVITY
     Dosage: 2 DOSAGE FORM, QD
     Route: 048
  3. TRASTUZUMAB. [Suspect]
     Active Substance: TRASTUZUMAB
     Dosage: 6 MILLIGRAM/KILOGRAM, Q21D (RECENT DOSE PERTUZUMAB,TRASTUZUMAB PRIOR SECOND EPISODE ANAEMIA 10/MAY
     Route: 042
     Dates: start: 20160831
  4. PANTOPRAZOL                        /01263201/ [Concomitant]
     Active Substance: PANTOPRAZOLE
     Indication: PROPHYLAXIS
     Dosage: 1 DOSAGE FORM, QD
     Route: 048
  5. PERTUZUMAB. [Suspect]
     Active Substance: PERTUZUMAB
     Indication: BREAST CANCER METASTATIC
     Dosage: 420 MG, Q21D, RECENT DOSE OF PERTUZUMAB, TRASTUZUMAB PRIOR TO SECOND EPISODE OF ANAEMIA 10/MAY
     Route: 042
     Dates: start: 20160831
  6. DOCETAXEL. [Suspect]
     Active Substance: DOCETAXEL
     Indication: BREAST CANCER METASTATIC
     Dosage: TREATMENT PRIOR TO SAE: 31/AUG/2016
     Route: 042
     Dates: start: 20160810
  7. TRASTUZUMAB. [Suspect]
     Active Substance: TRASTUZUMAB
     Indication: BREAST CANCER METASTATIC
     Dosage: 6 MILLIGRAM/KILOGRAM, Q21D (RECENT DOSE PERTUZUMAB, TRASTUZUMAB TO SECOND EPISODE OF ANAEMIA 10/MAY
     Route: 042
     Dates: start: 20160805
  8. PANTOPRAZOL                        /01263201/ [Concomitant]
     Active Substance: PANTOPRAZOLE
     Dosage: UNK
  9. ZOLEDRONIC ACID [Suspect]
     Active Substance: ZOLEDRONIC ACID
     Indication: PRODUCT USED FOR UNKNOWN INDICATION
     Dosage: 1 DOSAGE FORM, Q28 DINDICATION: BONE SPECIFIC THERAPY, 1 DOSAGE FORM, 28 DAYS
     Route: 065
     Dates: start: 20161012

REACTIONS (12)
  - Skin toxicity [Recovered/Resolved]
  - Polyneuropathy [Recovered/Resolved]
  - Epistaxis [Recovered/Resolved]
  - Pruritus [Recovered/Resolved]
  - Neutropenia [Recovered/Resolved]
  - Nasopharyngitis [Recovered/Resolved]
  - Febrile neutropenia [Not Recovered/Not Resolved]
  - Diarrhoea [Recovered/Resolved]
  - Alopecia [Recovered/Resolved]
  - Anaemia [Recovered/Resolved]
  - Nail toxicity [Recovered/Resolved]
  - Back pain [Recovered/Resolved]

NARRATIVE: CASE EVENT DATE: 20160810
